FAERS Safety Report 23808174 (Version 1)
Quarter: 2024Q2

REPORT INFORMATION
  Report Type: Spontaneous
  Country: US (occurrence: None)
  Receive Date: 20240501
  Receipt Date: 20240501
  Transmission Date: 20240716
  Serious: No
  Sender: FDA-Public Use
  Company Number: None

PATIENT
  Age: 83 Year
  Sex: 0

DRUGS (1)
  1. GAMMAGARD LIQUID [Suspect]
     Active Substance: HUMAN IMMUNOGLOBULIN G
     Dates: start: 20240429, end: 20240429

REACTIONS (3)
  - Infusion related reaction [None]
  - Chromaturia [None]
  - Urine output decreased [None]

NARRATIVE: CASE EVENT DATE: 20240429
